FAERS Safety Report 21734821 (Version 1)
Quarter: 2022Q4

REPORT INFORMATION
  Report Type: Spontaneous
  Country: IN (occurrence: IN)
  Receive Date: 20221215
  Receipt Date: 20221215
  Transmission Date: 20230113
  Serious: Yes (Other)
  Sender: FDA-Public Use
  Company Number: IN-PFIZER INC-202200093008

PATIENT
  Age: 70 Year
  Sex: Female

DRUGS (12)
  1. PALBOCICLIB [Suspect]
     Active Substance: PALBOCICLIB
     Indication: Breast cancer stage II
     Dosage: 125 MG, 1X/DAY X 21 DAYS ONE WEEK GAP
     Route: 048
     Dates: start: 20211013
  2. PALBOCICLIB [Suspect]
     Active Substance: PALBOCICLIB
     Dosage: 125 MG, 1X/DAY X 21 DAYS ONE WEEK GAP
     Route: 048
     Dates: start: 20221012
  3. LETROZOLE [Concomitant]
     Active Substance: LETROZOLE
     Dosage: 2.5 MG, 1X/DAY
  4. ZOMETA [Concomitant]
     Active Substance: ZOLEDRONIC ACID
     Dosage: INJECT 4 MG OVER 15 MIN
  5. ACETAMINOPHEN [Concomitant]
     Active Substance: ACETAMINOPHEN
     Dosage: CROCIN 1 STAT
  6. FEMARA [Concomitant]
     Active Substance: LETROZOLE
     Dosage: 2.5MG ONCE A DAY X DAILY
  7. FEMARA [Concomitant]
     Active Substance: LETROZOLE
     Dosage: 2.5MG ONCE A DAY X DAILY FOR 2MONTH
     Route: 048
     Dates: start: 20221012
  8. ASTHALIN [Concomitant]
     Dosage: UNK
  9. COREX DX [Concomitant]
     Dosage: UNK
  10. MYOSPAS [Concomitant]
     Dosage: 1 TABLET (MORNING + NIGHT) FOR 5 DAYS, 1X/DAY
     Route: 048
     Dates: start: 20221012
  11. SHELCAL CT [Concomitant]
     Dosage: 500 MG, 1X/DAY FOR 2 MONTHS
     Route: 048
     Dates: start: 20221012
  12. D RISE [Concomitant]
     Dosage: 1 UNIT WEEKLY, FOR 8 WEEK
     Route: 048
     Dates: start: 20221014

REACTIONS (15)
  - Blood pressure increased [Unknown]
  - Neutrophil count decreased [Unknown]
  - Pruritus [Unknown]
  - Lacrimation increased [Unknown]
  - Cough [Unknown]
  - Productive cough [Unknown]
  - Wheezing [Unknown]
  - Pain in extremity [Unknown]
  - Haemoglobin decreased [Unknown]
  - White blood cell count decreased [Unknown]
  - Neck pain [Unknown]
  - Back pain [Unknown]
  - Respiratory rate increased [Unknown]
  - Neoplasm progression [Unknown]
  - Body mass index abnormal [Unknown]

NARRATIVE: CASE EVENT DATE: 20211129
